FAERS Safety Report 8819357 (Version 2)
Quarter: 2013Q1

REPORT INFORMATION
  Report Type: Spontaneous
  Country: US (occurrence: US)
  Receive Date: 20121001
  Receipt Date: 20130109
  Transmission Date: 20140127
  Serious: Yes (Hospitalization, Other)
  Sender: FDA-Public Use
  Company Number: US-BAYER-2012-101536

PATIENT
  Age: 41 Year
  Sex: Female
  Weight: 87.53 kg

DRUGS (6)
  1. YAZ [Suspect]
     Indication: PREMENSTRUAL SYNDROME
     Dosage: UNK
     Dates: end: 20081223
  2. YASMIN [Suspect]
     Indication: PREMENSTRUAL SYNDROME
     Dosage: UNK
     Dates: end: 20081223
  3. ZOLOFT [Concomitant]
     Indication: DEPRESSION
     Dosage: 100 MG,DAILY,TAKEN IN 20 DAYS PRIOR TO INJURY
  4. XANAX [Concomitant]
     Dosage: 100 MG,DAILY
  5. HYDROCODONE W/APAP [Concomitant]
     Dosage: 7.5MG/50MG
  6. PROMETHAZINE [Concomitant]
     Dosage: 25 MG, UNK

REACTIONS (6)
  - Gallbladder injury [None]
  - Pain [None]
  - Pain [None]
  - Injury [None]
  - Cholecystitis chronic [None]
  - Off label use [None]
